FAERS Safety Report 9651059 (Version 2)
Quarter: 2021Q2

REPORT INFORMATION
  Report Type: Report from Study
  Country: IN (occurrence: IN)
  Receive Date: 20131029
  Receipt Date: 20210505
  Transmission Date: 20210717
  Serious: Yes (Other)
  Sender: FDA-Public Use
  Company Number: PHHY2013IN121512

PATIENT
  Age: 48 Year
  Sex: Female

DRUGS (2)
  1. GLIVEC [Suspect]
     Active Substance: IMATINIB MESYLATE
     Indication: CHRONIC MYELOID LEUKAEMIA
     Dosage: 400 MG, UNK (1 X 400 MG TABLET)
     Route: 065
     Dates: end: 20210403
  2. GLIVEC [Suspect]
     Active Substance: IMATINIB MESYLATE
     Dosage: 400 MG, UNK (1 X 400 MG TABLET)
     Route: 065
     Dates: start: 20210424

REACTIONS (2)
  - COVID-19 [Unknown]
  - Gastric infection [Unknown]

NARRATIVE: CASE EVENT DATE: 201307
